FAERS Safety Report 14702795 (Version 2)
Quarter: 2018Q2

REPORT INFORMATION
  Report Type: Spontaneous
  Country: US (occurrence: US)
  Receive Date: 20180402
  Receipt Date: 20180529
  Transmission Date: 20180711
  Serious: Yes (Hospitalization)
  Sender: FDA-Public Use
  Company Number: US-SUN PHARMACEUTICAL INDUSTRIES LTD-2018US-168653

PATIENT
  Age: 61 Year
  Sex: Male

DRUGS (1)
  1. PREDNISONE. [Suspect]
     Active Substance: PREDNISONE
     Indication: CHRONIC OBSTRUCTIVE PULMONARY DISEASE
     Dosage: 60 MG, DAILY
     Route: 065

REACTIONS (7)
  - Chronic obstructive pulmonary disease [Recovered/Resolved]
  - Diverticulitis [Recovered/Resolved]
  - Respiratory failure [Recovered/Resolved]
  - Pyomyositis [Recovered/Resolved]
  - Enterococcal infection [Recovered/Resolved]
  - Peritonitis [Recovered/Resolved]
  - Escherichia infection [Recovered/Resolved]
